FAERS Safety Report 7349975 (Version 2)
Quarter: 2019Q1

REPORT INFORMATION
  Report Type: Spontaneous
  Country: GR (occurrence: GR)
  Receive Date: 20100409
  Receipt Date: 20190318
  Transmission Date: 20190418
  Serious: Yes (Other)
  Sender: FDA-Public Use
  Company Number: GR-ROCHE-695269

PATIENT
  Age: 75 Year
  Sex: Male

DRUGS (4)
  1. COSOPT [Concomitant]
     Active Substance: DORZOLAMIDE HYDROCHLORIDE\TIMOLOL MALEATE
     Route: 065
  2. XALATAN [Concomitant]
     Active Substance: LATANOPROST
     Route: 065
  3. LOPRESSOR [Concomitant]
     Active Substance: METOPROLOL TARTRATE
     Route: 065
  4. AVASTIN [Suspect]
     Active Substance: BEVACIZUMAB
     Indication: NEOVASCULAR AGE-RELATED MACULAR DEGENERATION
     Route: 050

REACTIONS (3)
  - Sympathetic ophthalmia [Recovered/Resolved]
  - Atrophy of globe [Recovering/Resolving]
  - Choroidal haemorrhage [Recovering/Resolving]
